FAERS Safety Report 20336008 (Version 1)
Quarter: 2022Q1

REPORT INFORMATION
  Report Type: Spontaneous
  Country: US (occurrence: None)
  Receive Date: 20220114
  Receipt Date: 20220114
  Transmission Date: 20220424
  Serious: No
  Sender: FDA-Public Use
  Company Number: None

PATIENT
  Age: 52 Year
  Sex: Female

DRUGS (1)
  1. REGEN-COV [Suspect]
     Active Substance: CASIRIVIMAB\IMDEVIMAB
     Indication: COVID-19
     Dosage: OTHER FREQUENCY : ONCE;?
     Route: 042
     Dates: start: 20220113, end: 20220113

REACTIONS (8)
  - Paraesthesia [None]
  - Pain [None]
  - Pain in extremity [None]
  - Chest discomfort [None]
  - Infusion related reaction [None]
  - Hypotension [None]
  - Tachycardia [None]
  - Therapy cessation [None]

NARRATIVE: CASE EVENT DATE: 20220113
